FAERS Safety Report 12205318 (Version 1)
Quarter: 2016Q1

REPORT INFORMATION
  Report Type: Spontaneous
  Country: FR (occurrence: FR)
  Receive Date: 20160323
  Receipt Date: 20160323
  Transmission Date: 20160526
  Serious: Yes (Hospitalization)
  Sender: FDA-Public Use
  Company Number: FR-JNJFOC-20160313844

PATIENT
  Age: 86 Year
  Sex: Male

DRUGS (14)
  1. RISPERDAL [Suspect]
     Active Substance: RISPERIDONE
     Indication: PRODUCT USED FOR UNKNOWN INDICATION
     Route: 048
     Dates: start: 201512, end: 20160120
  2. TAHOR [Concomitant]
     Active Substance: ATORVASTATIN CALCIUM
     Route: 048
  3. MIANSERIN [Concomitant]
     Active Substance: MIANSERIN
     Indication: DEPRESSED MOOD
     Route: 065
     Dates: end: 201512
  4. MODOPAR [Concomitant]
     Active Substance: BENSERAZIDE HYDROCHLORIDE\LEVODOPA
     Indication: PARKINSONISM
     Route: 065
  5. MODOPAR [Concomitant]
     Active Substance: BENSERAZIDE HYDROCHLORIDE\LEVODOPA
     Indication: PARKINSONISM
     Route: 065
  6. PANTOPRAZOLE [Concomitant]
     Active Substance: PANTOPRAZOLE SODIUM
     Route: 048
  7. SERESTA [Concomitant]
     Active Substance: OXAZEPAM
     Indication: AGITATION
     Route: 065
  8. CLOPIDOGREL BESILATE [Concomitant]
     Active Substance: CLOPIDOGREL BESILATE
     Route: 048
  9. MIANSERIN [Concomitant]
     Active Substance: MIANSERIN
     Indication: MAJOR DEPRESSION
     Route: 065
     Dates: end: 201512
  10. EFFEXOR [Suspect]
     Active Substance: VENLAFAXINE HYDROCHLORIDE
     Indication: PRODUCT USED FOR UNKNOWN INDICATION
     Route: 048
     Dates: start: 201512, end: 20160120
  11. ZOPICLONE [Concomitant]
     Active Substance: ZOPICLONE
     Indication: INSOMNIA
     Route: 048
     Dates: start: 201509
  12. SERESTA [Concomitant]
     Active Substance: OXAZEPAM
     Indication: AGITATION
     Dosage: AS NECESSARY
     Route: 065
     Dates: start: 20151016
  13. MODOPAR [Concomitant]
     Active Substance: BENSERAZIDE HYDROCHLORIDE\LEVODOPA
     Indication: PARKINSONISM
     Dosage: DOSE REDUCED
     Route: 065
  14. THERALENE [Suspect]
     Active Substance: TRIMEPRAZINE
     Indication: PRODUCT USED FOR UNKNOWN INDICATION
     Route: 048
     Dates: start: 201512, end: 20160120

REACTIONS (4)
  - General physical health deterioration [Recovered/Resolved]
  - Salivary hypersecretion [Recovered/Resolved]
  - Disorientation [Unknown]
  - Muscle rigidity [Recovered/Resolved]

NARRATIVE: CASE EVENT DATE: 201601
